FAERS Safety Report 16739154 (Version 1)
Quarter: 2019Q3

REPORT INFORMATION
  Report Type: Spontaneous
  Country: US (occurrence: US)
  Receive Date: 20190826
  Receipt Date: 20190826
  Transmission Date: 20191005
  Serious: No
  Sender: FDA-Public Use
  Company Number: US-OREXO US, INC.-ORE201810-000106

PATIENT
  Sex: Female

DRUGS (2)
  1. ZUBSOLV [Suspect]
     Active Substance: BUPRENORPHINE HYDROCHLORIDE\NALOXONE HYDROCHLORIDE
     Route: 060
  2. FENTANYL. [Suspect]
     Active Substance: FENTANYL

REACTIONS (3)
  - Therapy cessation [Unknown]
  - Palpitations [Unknown]
  - Wrong technique in product usage process [Unknown]
